FAERS Safety Report 16734855 (Version 1)
Quarter: 2019Q3

REPORT INFORMATION
  Report Type: Spontaneous
  Country: US (occurrence: US)
  Receive Date: 20190823
  Receipt Date: 20190823
  Transmission Date: 20191005
  Serious: Yes (Other)
  Sender: FDA-Public Use
  Company Number: US-009507513-1908USA006738

PATIENT
  Sex: Female

DRUGS (15)
  1. LEUPROLIDE [Concomitant]
     Active Substance: LEUPROLIDE
  2. FOLLISTIM [Suspect]
     Active Substance: FOLLITROPIN
     Indication: INFERTILITY
     Dosage: DOSE-225 UNITS DAILY, STRENGTH-600 NO UNITS
     Route: 058
     Dates: start: 20190701
  3. METFORMIN [Concomitant]
     Active Substance: METFORMIN HYDROCHLORIDE
  4. AMOXICLAV [Concomitant]
     Active Substance: AMOXICILLIN\CLAVULANATE POTASSIUM
  5. SERTRALINE HYDROCHLORIDE. [Concomitant]
     Active Substance: SERTRALINE HYDROCHLORIDE
  6. PREGNYL [Suspect]
     Active Substance: CHORIOGONADOTROPIN ALFA
     Indication: INFERTILITY
     Dosage: STRENGTH-10,000 UNITS / 1 DOSE, AS DIRECTED
     Route: 058
     Dates: start: 20190521
  7. BENZONATATE. [Concomitant]
     Active Substance: BENZONATATE
  8. PROGESTERONE. [Concomitant]
     Active Substance: PROGESTERONE
  9. ENDOMETRIN [Concomitant]
     Active Substance: PROGESTERONE
  10. GANIRELIX ACETATE. [Concomitant]
     Active Substance: GANIRELIX ACETATE
  11. MONTELUKAST [Concomitant]
     Active Substance: MONTELUKAST SODIUM
  12. ASPIRIN. [Concomitant]
     Active Substance: ASPIRIN
  13. DESOGESTREL (+) ETHINYL ESTRADIOL [Concomitant]
     Active Substance: DESOGESTREL\ETHINYL ESTRADIOL
  14. DOXYCYCLINE. [Concomitant]
     Active Substance: DOXYCYCLINE
  15. GONADOTROPIN, CHORIONIC [Concomitant]
     Active Substance: CHORIOGONADOTROPIN ALFA

REACTIONS (1)
  - Muscle spasms [Unknown]

NARRATIVE: CASE EVENT DATE: 2019
